FAERS Safety Report 5329136-8 (Version None)
Quarter: 2007Q2

REPORT INFORMATION
  Report Type: 
  Country: None (occurrence: None)
  Receive Date: 20070518
  Receipt Date: 20070515
  Transmission Date: 20071010
  Serious: Yes (Hospitalization, Other)
  Sender: FDA-Public Use
  Company Number: US-PFIZER INC-2007018953

PATIENT
  Sex: Male
  Weight: 111.1 kg

DRUGS (11)
  1. SILDENAFIL CITRATE [Suspect]
     Indication: ERECTILE DYSFUNCTION
  2. ZITHROMAX [Suspect]
     Indication: BRONCHITIS
  3. CARDIZEM LA [Suspect]
     Indication: ATRIAL FIBRILLATION
     Dosage: DAILY DOSE:20MG
     Route: 048
     Dates: start: 20070208, end: 20070101
  4. RITALIN [Suspect]
     Indication: ATTENTION DEFICIT/HYPERACTIVITY DISORDER
     Route: 048
  5. CAFFEINE [Suspect]
     Route: 048
  6. LEVOTHYROXINE SODIUM [Concomitant]
  7. CLONAZEPAM [Concomitant]
  8. COZAAR [Concomitant]
  9. MULTI-VITAMINS [Concomitant]
  10. ACETYLSALICYLIC ACID SRT [Concomitant]
  11. METOPROLOL TARTRATE [Concomitant]

REACTIONS (14)
  - ATRIAL FIBRILLATION [None]
  - BLOOD CAFFEINE INCREASED [None]
  - BRONCHITIS [None]
  - DEHYDRATION [None]
  - DIZZINESS [None]
  - DRUG INEFFECTIVE [None]
  - DRUG WITHDRAWAL SYNDROME [None]
  - EJACULATION FAILURE [None]
  - FLUSHING [None]
  - HEART RATE DECREASED [None]
  - HEART RATE IRREGULAR [None]
  - PALPITATIONS [None]
  - PNEUMONIA [None]
  - UNEVALUABLE EVENT [None]
